FAERS Safety Report 13038127 (Version 1)
Quarter: 2016Q4

REPORT INFORMATION
  Report Type: Spontaneous
  Country: US (occurrence: US)
  Receive Date: 20161218
  Receipt Date: 20161218
  Transmission Date: 20170207
  Serious: No
  Sender: FDA-Public Use
  Company Number: US-BAUSCH-BL-2016-011824

PATIENT
  Sex: Female

DRUGS (1)
  1. DILTIAZEM HCL TABLETS [Suspect]
     Active Substance: DILTIAZEM HYDROCHLORIDE
     Indication: HYPERTENSION
     Route: 048

REACTIONS (1)
  - Drug ineffective [Unknown]
